FAERS Safety Report 10646450 (Version 1)
Quarter: 2014Q4

REPORT INFORMATION
  Report Type: Spontaneous
  Country: FR (occurrence: FR)
  Receive Date: 20141211
  Receipt Date: 20141211
  Transmission Date: 20150529
  Serious: Yes (Hospitalization)
  Sender: FDA-Public Use
  Company Number: FR-PFIZER INC-2014338675

PATIENT
  Age: 62 Year
  Sex: Female

DRUGS (9)
  1. TRIFLUCAN [Concomitant]
     Active Substance: FLUCONAZOLE
     Dosage: UNK
  2. LASILIX [Concomitant]
     Active Substance: FUROSEMIDE
     Dosage: UNK
  3. EUPANTOL [Suspect]
     Active Substance: PANTOPRAZOLE SODIUM
     Dosage: UNK
     Dates: start: 20141001, end: 20141011
  4. SPASFON [Concomitant]
     Active Substance: PHLOROGLUCINOL
     Dosage: UNK
  5. PIPERACILLIN/TAZOBACTAM [Suspect]
     Active Substance: PIPERACILLIN SODIUM\TAZOBACTAM SODIUM
     Indication: SEPSIS
     Dosage: UNK
     Dates: start: 20141001, end: 20141009
  6. CIPROFLOXACIN. [Suspect]
     Active Substance: CIPROFLOXACIN
     Indication: SEPSIS
     Dosage: UNK
     Dates: start: 20141001, end: 20141007
  7. AZANTAC [Concomitant]
     Active Substance: RANITIDINE HYDROCHLORIDE
     Dosage: UNK
  8. IOMERON [Concomitant]
     Active Substance: IOMEPROL
     Dosage: UNK
  9. EUPRESSYL [Concomitant]
     Active Substance: URAPIDIL
     Dosage: UNK

REACTIONS (1)
  - Acute generalised exanthematous pustulosis [Recovering/Resolving]

NARRATIVE: CASE EVENT DATE: 20141007
